FAERS Safety Report 5030581-9 (Version None)
Quarter: 2006Q2

REPORT INFORMATION
  Report Type: 
  Country: None (occurrence: None)
  Receive Date: 20060615
  Receipt Date: 20060606
  Transmission Date: 20061013
  Serious: Yes (Life-Threatening, Hospitalization)
  Sender: FDA-Public Use
  Company Number: 2006047896

PATIENT
  Age: 40 Year
  Sex: Female
  Weight: 86.1834 kg

DRUGS (1)
  1. GENOTROPIN [Suspect]
     Indication: GROWTH HORMONE DEFICIENCY
     Dosage: 0.3 MG (0.3 MG 1 IN 1 D) SUBCUTANEOUS
     Route: 058
     Dates: start: 20030101

REACTIONS (6)
  - CRYING [None]
  - EMOTIONAL DISTRESS [None]
  - FATIGUE [None]
  - INTENTIONAL SELF-INJURY [None]
  - LACERATION [None]
  - SUICIDE ATTEMPT [None]
